FAERS Safety Report 21098339 (Version 1)
Quarter: 2022Q3

REPORT INFORMATION
  Report Type: Other
  Country: US (occurrence: None)
  Receive Date: 20220719
  Receipt Date: 20220719
  Transmission Date: 20221027
  Serious: No
  Sender: FDA-Public Use
  Company Number: US-ROCHE-2776981

PATIENT
  Sex: Female
  Weight: 65.376 kg

DRUGS (13)
  1. OCREVUS [Suspect]
     Active Substance: OCRELIZUMAB
     Indication: Relapsing multiple sclerosis
     Dosage: DATE OF NEXT INFUSION: 20/FEB/2021
     Route: 065
     Dates: start: 20210209
  2. OCREVUS [Suspect]
     Active Substance: OCRELIZUMAB
     Dosage: 1ST TWO HALF DOSES ARE SPLIT GIVEN 2 WEEKS APART
     Route: 042
  3. CLONAZEPAM [Suspect]
     Active Substance: CLONAZEPAM
     Indication: Tremor
     Route: 048
     Dates: start: 2016
  4. SOLU-MEDROL [Suspect]
     Active Substance: METHYLPREDNISOLONE SODIUM SUCCINATE
     Indication: Premedication
     Dosage: ONE TIME DOSE FOR OCREVUS PREMEDICATION
     Route: 065
     Dates: start: 20210209, end: 20210209
  5. TRAMADOL [Concomitant]
     Active Substance: TRAMADOL
     Indication: Pain
     Route: 048
  6. TYLENOL WITH CODEINE [Concomitant]
     Active Substance: ACETAMINOPHEN\CODEINE PHOSPHATE
     Indication: Pain
     Route: 048
  7. TELMISARTAN [Concomitant]
     Active Substance: TELMISARTAN
     Indication: Hypertension
     Dosage: 80/12.5 MG
     Route: 048
  8. BENADRYL [Concomitant]
     Active Substance: DIPHENHYDRAMINE HYDROCHLORIDE
     Indication: Premedication
     Dates: start: 20210209, end: 20210209
  9. BENADRYL [Concomitant]
     Active Substance: DIPHENHYDRAMINE HYDROCHLORIDE
     Dates: start: 20210226, end: 20210226
  10. REBIF [Concomitant]
     Active Substance: INTERFERON BETA-1A
  11. AVONEX [Concomitant]
     Active Substance: INTERFERON BETA-1A
  12. PLEGRIDY [Concomitant]
     Active Substance: PEGINTERFERON BETA-1A
  13. TECFIDERA [Concomitant]
     Active Substance: DIMETHYL FUMARATE
     Indication: Relapsing multiple sclerosis
     Route: 048
     Dates: end: 202102

REACTIONS (10)
  - Pain in extremity [Recovered/Resolved]
  - Tremor [Recovered/Resolved]
  - Off label use [Unknown]
  - Dizziness [Unknown]
  - Muscle twitching [Unknown]
  - Pruritus [Recovered/Resolved]
  - Agitation [Unknown]
  - Fatigue [Not Recovered/Not Resolved]
  - Limb discomfort [Not Recovered/Not Resolved]
  - JC polyomavirus test positive [Not Recovered/Not Resolved]

NARRATIVE: CASE EVENT DATE: 20160101
